FAERS Safety Report 12633724 (Version 1)
Quarter: 2016Q3

REPORT INFORMATION
  Report Type: Spontaneous
  Country: US (occurrence: US)
  Receive Date: 20160808
  Receipt Date: 20160808
  Transmission Date: 20161109
  Serious: Yes (Death)
  Sender: FDA-Public Use
  Company Number: US-JNJFOC-20160805293

PATIENT
  Sex: Male
  Weight: 62.23 kg

DRUGS (2)
  1. YONDELIS [Suspect]
     Active Substance: TRABECTEDIN
     Indication: SOFT TISSUE SARCOMA
     Route: 065
     Dates: start: 20150812
  2. YONDELIS [Suspect]
     Active Substance: TRABECTEDIN
     Indication: MALIGNANT CONNECTIVE TISSUE NEOPLASM
     Route: 065
     Dates: start: 20150812

REACTIONS (1)
  - Death [Fatal]
